FAERS Safety Report 9364652 (Version 2)
Quarter: 2013Q3

REPORT INFORMATION
  Report Type: Spontaneous
  Country: CN (occurrence: CN)
  Receive Date: 20130624
  Receipt Date: 20130710
  Transmission Date: 20140515
  Serious: Yes (Other)
  Sender: FDA-Public Use
  Company Number: CN-BRISTOL-MYERS SQUIBB COMPANY-19015593

PATIENT
  Age: 57 Year
  Sex: Male

DRUGS (1)
  1. BARACLUDE [Suspect]
     Route: 048

REACTIONS (1)
  - Hepatic neoplasm [Unknown]
